FAERS Safety Report 5015817-2 (Version None)
Quarter: 2006Q2

REPORT INFORMATION
  Report Type: 
  Country: None (occurrence: None)
  Receive Date: 20060426
  Receipt Date: 20051014
  Transmission Date: 20061013
  Serious: No
  Sender: FDA-Public Use
  Company Number: US155751

PATIENT
  Age: 38 Year
  Sex: Female

DRUGS (5)
  1. SENSIPAR [Suspect]
     Indication: HYPERPARATHYROIDISM SECONDARY
     Dosage: 30 MG, 1 IN 1 DAYS PO
     Route: 048
     Dates: start: 20050524
  2. OSCAL [Concomitant]
  3. SEVELAMER HCL [Concomitant]
  4. ASPIRIN [Concomitant]
  5. CYANOCOBALAMIN/FOLIC ACID [Concomitant]

REACTIONS (1)
  - PARAESTHESIA [None]
